FAERS Safety Report 17495043 (Version 1)
Quarter: 2020Q1

REPORT INFORMATION
  Report Type: Spontaneous
  Country: US (occurrence: US)
  Receive Date: 20200303
  Receipt Date: 20200303
  Transmission Date: 20200409
  Serious: No
  Sender: FDA-Public Use
  Company Number: None

PATIENT
  Age: 68 Year
  Sex: Male

DRUGS (11)
  1. POT CL MICO TAB 20MEQ ER [Concomitant]
     Dates: start: 20200224
  2. CELECOXIB CAP 100 MG [Concomitant]
     Dates: start: 20191013
  3. METOPROL TAR TAB 25MG [Concomitant]
     Dates: start: 20191208
  4. COSENTYX [Suspect]
     Active Substance: SECUKINUMAB
     Indication: PRODUCT USED FOR UNKNOWN INDICATION
     Dosage: ?          OTHER FREQUENCY:2 PENS EVERY 4 WKS;?
     Route: 058
     Dates: start: 20190924
  5. METOPROL TAR TAB 25MG [Concomitant]
     Dates: start: 20200224
  6. XARELTO TAB 20MG [Concomitant]
     Dates: start: 20200117
  7. ALLOPURINOL TAB 300MG [Concomitant]
     Dates: start: 20200120
  8. ALLOPURINOL TAB 300MG [Concomitant]
     Dates: start: 20200117
  9. XARELTO TAB 20MG [Concomitant]
     Dates: start: 20200120
  10. DULOXETINE CAP 30MG [Concomitant]
     Dates: start: 20190924
  11. XARELTO TAB 20MG [Concomitant]
     Dates: start: 20191208

REACTIONS (1)
  - Spinal operation [None]

NARRATIVE: CASE EVENT DATE: 20200303
